FAERS Safety Report 6805190-9 (Version None)
Quarter: 2010Q2

REPORT INFORMATION
  Report Type: 
  Country: None (occurrence: None)
  Receive Date: 20100628
  Receipt Date: 20100628
  Transmission Date: 20101027
  Serious: Yes (Other)
  Sender: FDA-Public Use
  Company Number: None

PATIENT
  Age: 45 Year
  Sex: Female
  Weight: 68.0396 kg

DRUGS (2)
  1. ALLI [Suspect]
     Indication: WEIGHT CONTROL
     Dosage: ONE PILL 3 TIMES A DAY PO
     Route: 048
     Dates: start: 20100501, end: 20100615
  2. PROMETHAZINE [Concomitant]

REACTIONS (3)
  - DIARRHOEA [None]
  - GASTRIC DISORDER [None]
  - VOMITING [None]
